FAERS Safety Report 5473018-8 (Version None)
Quarter: 2007Q4

REPORT INFORMATION
  Report Type: 
  Country: None (occurrence: None)
  Receive Date: 20071001
  Receipt Date: 20070205
  Transmission Date: 20080405
  Serious: No
  Sender: FDA-Public Use
  Company Number: US-ASTRAZENECA-2007UW02361

PATIENT
  Age: 82 Year
  Sex: Female

DRUGS (5)
  1. ARIMIDEX [Suspect]
     Indication: BREAST CANCER
     Route: 048
  2. MOBIC [Concomitant]
  3. ATENOLOL [Concomitant]
  4. NORVASC [Concomitant]
  5. DARVOCET [Concomitant]

REACTIONS (2)
  - CONSTIPATION [None]
  - VERTIGO [None]
